FAERS Safety Report 7586095-5 (Version None)
Quarter: 2011Q3

REPORT INFORMATION
  Report Type: 
  Country: None (occurrence: None)
  Receive Date: 20110701
  Receipt Date: 20110628
  Transmission Date: 20111222
  Serious: Yes (Other)
  Sender: FDA-Public Use
  Company Number: US-AMGEN-USASP2011031270

PATIENT
  Age: 48 Year
  Sex: Female
  Weight: 61.224 kg

DRUGS (3)
  1. CORTICOSTEROIDS [Concomitant]
  2. NPLATE [Suspect]
     Indication: IDIOPATHIC THROMBOCYTOPENIC PURPURA
     Dosage: 8 A?G/KG, UNK
     Dates: start: 20110114, end: 20110602
  3. NPLATE [Suspect]
     Dates: start: 20110114, end: 20110608

REACTIONS (5)
  - FATIGUE [None]
  - EPISTAXIS [None]
  - CONTUSION [None]
  - PLATELET COUNT ABNORMAL [None]
  - PETECHIAE [None]
